FAERS Safety Report 13368033 (Version 1)
Quarter: 2017Q1

REPORT INFORMATION
  Report Type: Spontaneous
  Country: FR (occurrence: FR)
  Receive Date: 20170324
  Receipt Date: 20170324
  Transmission Date: 20170429
  Serious: Yes (Death, Life-Threatening, Other)
  Sender: FDA-Public Use
  Company Number: FR-SUN PHARMACEUTICAL INDUSTRIES LTD-2017R1-136510

PATIENT
  Age: 11 Year
  Sex: Female

DRUGS (5)
  1. ILOPROST [Suspect]
     Active Substance: ILOPROST
     Indication: MORPHOEA
     Dosage: UNK
     Route: 065
  2. METHOTREXATE. [Suspect]
     Active Substance: METHOTREXATE
     Indication: MORPHOEA
     Dosage: UNK
     Route: 058
     Dates: start: 2012
  3. OXYGEN. [Concomitant]
     Active Substance: OXYGEN
     Indication: MORPHOEA
     Dosage: UNK
     Route: 065
  4. CYCLOPHOSPHAMIDE. [Suspect]
     Active Substance: CYCLOPHOSPHAMIDE
     Indication: MORPHOEA
     Dosage: 6 CYCLES
     Route: 065
     Dates: start: 201209, end: 201302
  5. PREDNISONE. [Suspect]
     Active Substance: PREDNISONE
     Indication: MORPHOEA
     Dosage: 0.5 MG/KG, DAILY
     Route: 048
     Dates: start: 2012

REACTIONS (2)
  - Drug ineffective [Not Recovered/Not Resolved]
  - Disease progression [Fatal]
